FAERS Safety Report 21551760 (Version 1)
Quarter: 2022Q4

REPORT INFORMATION
  Report Type: Report from Study
  Country: US (occurrence: US)
  Receive Date: 20221104
  Receipt Date: 20221104
  Transmission Date: 20230113
  Serious: No
  Sender: FDA-Public Use
  Company Number: US-ABBVIE-21K-163-4098153-00

PATIENT
  Sex: Female

DRUGS (5)
  1. HUMIRA [Suspect]
     Active Substance: ADALIMUMAB
     Indication: Colitis ulcerative
     Dosage: CITRATE FREE?LAST ADMINISTRATION DATE WAS 2021.
     Route: 058
     Dates: start: 202110
  2. HUMIRA [Suspect]
     Active Substance: ADALIMUMAB
     Dosage: FORM STRENGTH 40 MILLIGRAM
     Route: 058
     Dates: start: 202110
  3. HUMIRA [Suspect]
     Active Substance: ADALIMUMAB
     Dosage: CITRATE FREE?ONE IN ONCE?LAST ADMINISTRATION DATE WAS 2021.
     Route: 058
     Dates: start: 2021
  4. HUMIRA [Suspect]
     Active Substance: ADALIMUMAB
     Dosage: CITRATE FREE?ONE IN ONCE?LAST ADMINISTRATION DATE WAS 2021.
     Route: 058
     Dates: start: 2021
  5. PFIZER-BIONTECH COVID-19 VACCINE [Concomitant]
     Active Substance: TOZINAMERAN
     Indication: COVID-19 immunisation
     Dosage: ONE IN ONCE
     Route: 030

REACTIONS (18)
  - COVID-19 [Recovered/Resolved]
  - Fatigue [Recovered/Resolved]
  - Insomnia [Unknown]
  - Photosensitivity reaction [Recovered/Resolved]
  - Nausea [Recovered/Resolved]
  - Headache [Recovered/Resolved]
  - Anxiety [Unknown]
  - Colitis ulcerative [Not Recovered/Not Resolved]
  - Colitis [Unknown]
  - Frequent bowel movements [Unknown]
  - Decreased appetite [Unknown]
  - Defaecation urgency [Unknown]
  - Abdominal distension [Unknown]
  - COVID-19 [Recovered/Resolved]
  - Flatulence [Unknown]
  - Adverse food reaction [Unknown]
  - Constipation [Unknown]
  - Depressed mood [Unknown]
